FAERS Safety Report 5368354-X (Version None)
Quarter: 2007Q2

REPORT INFORMATION
  Report Type: 
  Country: None (occurrence: None)
  Receive Date: 20070622
  Receipt Date: 20070622
  Transmission Date: 20071010
  Serious: Yes (Hospitalization)
  Sender: FDA-Public Use
  Company Number: None

PATIENT
  Sex: Male
  Weight: 87.3 kg

DRUGS (1)
  1. MYLOTARG [Suspect]

REACTIONS (9)
  - BLOOD CULTURE POSITIVE [None]
  - COUGH [None]
  - NAUSEA [None]
  - NEUTROPENIA [None]
  - PHARYNGOLARYNGEAL PAIN [None]
  - PYREXIA [None]
  - STOMATITIS [None]
  - STREPTOCOCCAL INFECTION [None]
  - VOMITING [None]
